FAERS Safety Report 5087462-4 (Version None)
Quarter: 2006Q3

REPORT INFORMATION
  Report Type: 
  Country: None (occurrence: None)
  Receive Date: 20060823
  Receipt Date: 20060823
  Transmission Date: 20061208
  Serious: Yes (Hospitalization)
  Sender: FDA-Public Use
  Company Number: None

PATIENT
  Age: 55 Year
  Sex: Male
  Weight: 91 kg

DRUGS (10)
  1. LISINOPRIL [Suspect]
     Indication: HYPERTENSION
     Dosage: 10MG DAILY PO
     Route: 048
     Dates: start: 19960101, end: 20060629
  2. BUPRENORPHINE 8MG/NALOXONE [Concomitant]
  3. ATENOLOL [Concomitant]
  4. HYDROCHLOROTHIAZIDE [Concomitant]
  5. ASPIRIN [Concomitant]
  6. SERTRALINE [Concomitant]
  7. PANTOPRAZOLE SODIUM [Concomitant]
  8. GEMFIBROZIL [Concomitant]
  9. NIFEDIPINE [Concomitant]
  10. LOVASTATIN [Concomitant]

REACTIONS (5)
  - ABNORMAL FAECES [None]
  - BLOOD CREATININE INCREASED [None]
  - STEATORRHOEA [None]
  - SWELLING FACE [None]
  - SWOLLEN TONGUE [None]
